FAERS Safety Report 10282033 (Version 1)
Quarter: 2014Q3

REPORT INFORMATION
  Report Type: Spontaneous
  Country: US (occurrence: US)
  Receive Date: 20140707
  Receipt Date: 20140707
  Transmission Date: 20150326
  Serious: Yes (Hospitalization)
  Sender: FDA-Public Use
  Company Number: US-GLAXOSMITHKLINE-A1079693A

PATIENT
  Age: 69 Year
  Sex: Male
  Weight: 135.5 kg

DRUGS (1)
  1. AVANDIA [Suspect]
     Active Substance: ROSIGLITAZONE MALEATE
     Indication: DIABETES MELLITUS
     Dosage: 8MG PER DAY
     Route: 048
     Dates: end: 200602

REACTIONS (4)
  - Myocardial infarction [Unknown]
  - Adverse event [Unknown]
  - Myocardial ischaemia [Unknown]
  - Cardiac failure congestive [Unknown]
